FAERS Safety Report 6153427-4 (Version None)
Quarter: 2009Q2

REPORT INFORMATION
  Report Type: 
  Country: None (occurrence: None)
  Receive Date: 20090409
  Receipt Date: 20090409
  Transmission Date: 20091009
  Serious: No
  Sender: FDA-Public Use
  Company Number: None

PATIENT
  Sex: Female
  Weight: 87.5442 kg

DRUGS (1)
  1. PRILOSEC OTC [Suspect]
     Indication: BARRETT'S OESOPHAGUS
     Dosage: 20 MG BID PO
     Route: 048
     Dates: start: 20090220, end: 20090311

REACTIONS (3)
  - ABDOMINAL PAIN UPPER [None]
  - CARDIAC DISORDER [None]
  - GASTROINTESTINAL DISORDER [None]
